FAERS Safety Report 9292462 (Version 5)
Quarter: 2014Q2

REPORT INFORMATION
  Report Type: Spontaneous
  Country: US (occurrence: US)
  Receive Date: 20130516
  Receipt Date: 20140604
  Transmission Date: 20141212
  Serious: No
  Sender: FDA-Public Use
  Company Number: US-PFIZER INC-2013148278

PATIENT
  Age: 61 Year
  Sex: Male

DRUGS (9)
  1. SUTENT [Suspect]
     Indication: RENAL CANCER
     Dosage: 1 DF, UNK (1 CAP X 28 DAYS)
     Dates: start: 20130425
  2. SUTENT [Suspect]
     Dosage: 50 MG, DAILY
     Route: 048
     Dates: start: 20130228
  3. LISINOPRIL [Concomitant]
     Dosage: UNK
  4. PROPAFENONE [Concomitant]
     Dosage: UNK
  5. PREDNISONE [Concomitant]
     Dosage: UNK
  6. TESTOSTERONE [Concomitant]
     Dosage: UNK
  7. CITALOPRAM [Concomitant]
     Dosage: UNK
  8. LEVOXYL [Concomitant]
     Dosage: UNK
  9. NOVOLOG [Concomitant]
     Dosage: UNK

REACTIONS (2)
  - Headache [Not Recovered/Not Resolved]
  - Palmar-plantar erythrodysaesthesia syndrome [Unknown]
